FAERS Safety Report 8588403-5 (Version None)
Quarter: 2012Q3

REPORT INFORMATION
  Report Type: 
  Country: None (occurrence: None)
  Receive Date: 20120813
  Receipt Date: 20120801
  Transmission Date: 20120928
  Serious: Yes (Other)
  Sender: FDA-Public Use
  Company Number: CA-JNJFOC-20120802478

PATIENT
  Sex: Male

DRUGS (1)
  1. REMICADE [Suspect]
     Indication: CROHN'S DISEASE
     Route: 042
     Dates: start: 20120801, end: 20120801

REACTIONS (4)
  - INFUSION RELATED REACTION [None]
  - NAUSEA [None]
  - FLUSHING [None]
  - CHEST DISCOMFORT [None]
